FAERS Safety Report 15150685 (Version 1)
Quarter: 2018Q3

REPORT INFORMATION
  Report Type: Spontaneous
  Country: GB (occurrence: GB)
  Receive Date: 20180716
  Receipt Date: 20180716
  Transmission Date: 20181010
  Serious: Yes (Other)
  Sender: FDA-Public Use
  Company Number: GB-MYLANLABS-2018M1050606

PATIENT
  Age: 63 Year
  Sex: Male
  Weight: 75 kg

DRUGS (3)
  1. EFUDIX [Suspect]
     Active Substance: FLUOROURACIL
     Indication: HYPERKERATOSIS
     Dosage: AS LEAFLET ? APPLY THIN LAYER TO SMALL AREA ONCE A DAY
     Route: 061
     Dates: start: 20171202, end: 20171230
  2. OMEPRAZOLE. [Concomitant]
     Active Substance: OMEPRAZOLE
     Indication: PRODUCT USED FOR UNKNOWN INDICATION
  3. PREDNISOLONE. [Concomitant]
     Active Substance: PREDNISOLONE
     Indication: PRODUCT USED FOR UNKNOWN INDICATION

REACTIONS (4)
  - Rash papular [Recovering/Resolving]
  - Dry skin [Recovering/Resolving]
  - Skin exfoliation [Recovering/Resolving]
  - Pruritus [Recovering/Resolving]

NARRATIVE: CASE EVENT DATE: 20171224
